FAERS Safety Report 6787443-6 (Version None)
Quarter: 2010Q2

REPORT INFORMATION
  Report Type: 
  Country: None (occurrence: None)
  Receive Date: 20100623
  Receipt Date: 20070614
  Transmission Date: 20101027
  Serious: Yes (Other)
  Sender: FDA-Public Use
  Company Number: US-PFIZER INC-2007021510

PATIENT
  Sex: Female
  Weight: 59 kg

DRUGS (4)
  1. MEDROXYPROGESTERONE ACETATE [Suspect]
     Indication: CONTRACEPTION
     Dosage: FIRST INJECTION
     Route: 030
     Dates: start: 20060222, end: 20060222
  2. MEDROXYPROGESTERONE ACETATE [Suspect]
     Dosage: INJECTION EVERY 3 MONTHS
     Route: 030
     Dates: start: 20060517, end: 20060517
  3. MEDROXYPROGESTERONE ACETATE [Suspect]
     Dosage: INJECTION EVERY 3 MONTHS
     Route: 030
     Dates: start: 20060808, end: 20060808
  4. MEDROXYPROGESTERONE ACETATE [Suspect]
     Dosage: LAST INJECTION
     Route: 030
     Dates: start: 20061031, end: 20061031

REACTIONS (2)
  - DRUG INEFFECTIVE [None]
  - UNINTENDED PREGNANCY [None]
